FAERS Safety Report 6887923-9 (Version None)
Quarter: 2010Q3

REPORT INFORMATION
  Report Type: 
  Country: None (occurrence: None)
  Receive Date: 20100730
  Receipt Date: 20100720
  Transmission Date: 20110219
  Serious: Yes (Hospitalization)
  Sender: FDA-Public Use
  Company Number: A0785670A

PATIENT
  Age: 56 Year
  Sex: Male
  Weight: 110 kg

DRUGS (3)
  1. AVANDAMET [Suspect]
     Route: 048
     Dates: start: 20070207, end: 20080111
  2. VYTORIN [Concomitant]
  3. METOPROLOL XL [Concomitant]

REACTIONS (1)
  - MYOCARDIAL INFARCTION [None]
